FAERS Safety Report 12131801 (Version 1)
Quarter: 2016Q1

REPORT INFORMATION
  Report Type: Spontaneous
  Country: US (occurrence: None)
  Receive Date: 20160229
  Receipt Date: 20160229
  Transmission Date: 20160526
  Serious: Yes (Hospitalization)
  Sender: FDA-Public Use
  Company Number: None

PATIENT
  Age: 77 Year
  Sex: Male
  Weight: 67.1 kg

DRUGS (2)
  1. CARBOPLATIN. [Suspect]
     Active Substance: CARBOPLATIN
     Dates: end: 20151223
  2. TAXOL [Suspect]
     Active Substance: PACLITAXEL
     Dates: end: 20151223

REACTIONS (6)
  - Metastases to bone [None]
  - Pulmonary fibrosis [None]
  - Pneumonitis [None]
  - Compartment syndrome [None]
  - Metastases to liver [None]
  - Haematoma [None]

NARRATIVE: CASE EVENT DATE: 20160108
